FAERS Safety Report 7705377 (Version 2)
Quarter: 2015Q2

REPORT INFORMATION
  Report Type: Report from Study
  Country: AT (occurrence: AT)
  Receive Date: 20101213
  Receipt Date: 20150630
  Transmission Date: 20150821
  Serious: Yes (Death, Hospitalization)
  Sender: FDA-Public Use
  Company Number: AT-ROCHE-576264

PATIENT
  Age: 62 Year
  Sex: Female
  Weight: 40 kg

DRUGS (87)
  1. PREDNISONE. [Suspect]
     Active Substance: PREDNISONE
     Indication: DIFFUSE LARGE B-CELL LYMPHOMA
     Route: 048
     Dates: start: 20080625, end: 20081009
  2. MYCOSTATIN [Concomitant]
     Active Substance: NYSTATIN
     Route: 065
  3. ZOVIRAX [Concomitant]
     Active Substance: ACYCLOVIR
     Route: 065
     Dates: start: 20081207, end: 20081215
  4. NACL .9% [Concomitant]
     Route: 065
     Dates: start: 20090119, end: 20090119
  5. SANDOSTATIN [Concomitant]
     Active Substance: OCTREOTIDE ACETATE
     Route: 065
     Dates: start: 20090727, end: 20090731
  6. SANDOSTATIN [Concomitant]
     Active Substance: OCTREOTIDE ACETATE
     Route: 065
     Dates: start: 20090808, end: 20090808
  7. RITUXIMAB [Suspect]
     Active Substance: RITUXIMAB
     Indication: DIFFUSE LARGE B-CELL LYMPHOMA
     Dosage: THERAPY INTERRUPTED. LAST DOSE PRIOR TO SAE: 26 AUGUST 2008
     Route: 042
     Dates: start: 20080626, end: 20080826
  8. RITUXIMAB [Suspect]
     Active Substance: RITUXIMAB
     Route: 042
  9. CYCLOPHOSPHAMIDE. [Suspect]
     Active Substance: CYCLOPHOSPHAMIDE
     Dosage: LAST DOSE PRIOR TO SAE: 26 AUGUST 2008.
     Route: 042
  10. LOVENOX [Concomitant]
     Active Substance: ENOXAPARIN SODIUM
     Route: 065
     Dates: start: 20080716, end: 20080729
  11. LOVENOX [Concomitant]
     Active Substance: ENOXAPARIN SODIUM
     Route: 065
  12. MYCOSTATIN [Concomitant]
     Active Substance: NYSTATIN
     Route: 065
  13. AMPHO MORONAL [Concomitant]
     Route: 065
     Dates: start: 20081208, end: 20081215
  14. KCL-RETARD ZYMA [Concomitant]
     Dosage: REPORTED AS KCL RET; TOTAL DAILY DOSE: 2 X 7
     Route: 065
  15. KCL-RETARD ZYMA [Concomitant]
     Route: 065
     Dates: start: 20090821, end: 20090912
  16. PASPERTIN (AUSTRIA) [Concomitant]
     Route: 065
  17. SANGENOR [Concomitant]
     Dosage: TDD REPORTED AS 3X1.
     Route: 065
     Dates: start: 20090217, end: 20090314
  18. HALCION [Concomitant]
     Active Substance: TRIAZOLAM
     Route: 065
  19. TRITTICO [Concomitant]
     Active Substance: TRAZODONE HYDROCHLORIDE
     Route: 065
     Dates: start: 20090521, end: 20090912
  20. ZOFRAN ZIDIS [Concomitant]
     Route: 065
     Dates: start: 20090705, end: 20090912
  21. KYTRIL [Concomitant]
     Active Substance: GRANISETRON HYDROCHLORIDE
     Route: 065
     Dates: start: 20090707, end: 20090803
  22. SANDOSTATIN [Concomitant]
     Active Substance: OCTREOTIDE ACETATE
     Route: 065
     Dates: start: 20090805, end: 20090807
  23. SANDOSTATIN [Concomitant]
     Active Substance: OCTREOTIDE ACETATE
     Route: 065
     Dates: start: 20090809, end: 20090813
  24. PLACEBO [Suspect]
     Active Substance: UNSPECIFIED INGREDIENT
     Dosage: LAST DOSE PRIOR TO SAE REPORTED AS 09 OCTOBER 2008.
     Route: 042
     Dates: start: 20081009, end: 20081023
  25. LOVENOX [Concomitant]
     Active Substance: ENOXAPARIN SODIUM
     Route: 065
     Dates: start: 20080703, end: 20090912
  26. LOVENOX [Concomitant]
     Active Substance: ENOXAPARIN SODIUM
     Route: 065
  27. LOVENOX [Concomitant]
     Active Substance: ENOXAPARIN SODIUM
     Route: 065
     Dates: start: 20090619, end: 20090622
  28. ZOVIRAX [Concomitant]
     Active Substance: ACYCLOVIR
     Route: 065
  29. AUGMENTIN [Concomitant]
     Active Substance: AMOXICILLIN\CLAVULANATE POTASSIUM
     Route: 065
  30. SERACTIL [Concomitant]
     Active Substance: DEXIBUPROFEN
     Route: 065
     Dates: start: 20081212, end: 20081216
  31. LASIX [Concomitant]
     Active Substance: FUROSEMIDE
     Route: 065
     Dates: start: 20090119, end: 20090119
  32. NACL .9% [Concomitant]
     Route: 065
     Dates: start: 20090630, end: 20090810
  33. CANCIDAS [Concomitant]
     Active Substance: CASPOFUNGIN ACETATE
     Route: 065
     Dates: start: 20090219, end: 20090310
  34. ANAEROBEX [Concomitant]
     Dosage: TDD: 1500.
     Route: 065
     Dates: start: 20090219, end: 20090302
  35. NOVABAN [Concomitant]
     Dosage: DOSE NOT LEGIBLE
     Route: 065
     Dates: start: 20090630, end: 20090912
  36. PSYCHOPAX [Concomitant]
     Active Substance: DIAZEPAM
     Dosage: TDD REPORTED AS 5GTT
     Route: 065
     Dates: start: 20090801, end: 20090912
  37. SANDOSTATIN [Concomitant]
     Active Substance: OCTREOTIDE ACETATE
     Route: 065
     Dates: start: 20090719, end: 20090721
  38. DOXORUBICIN [Suspect]
     Active Substance: DOXORUBICIN
     Indication: DIFFUSE LARGE B-CELL LYMPHOMA
     Route: 042
     Dates: start: 20080625, end: 20081009
  39. KALIORAL (AUSTRIA) [Concomitant]
     Dosage: TOTAL DAILY DOSE: 2 X 1
     Route: 065
  40. MEFENAMIC-ACID [Concomitant]
     Active Substance: MEFENAMIC ACID
     Route: 065
     Dates: start: 20081114, end: 20081114
  41. ZOFRAN [Concomitant]
     Active Substance: ONDANSETRON HYDROCHLORIDE
     Route: 065
     Dates: start: 20090703, end: 20090912
  42. SANDOSTATIN [Concomitant]
     Active Substance: OCTREOTIDE ACETATE
     Route: 065
     Dates: start: 20090814, end: 20090814
  43. CYCLOPHOSPHAMIDE. [Suspect]
     Active Substance: CYCLOPHOSPHAMIDE
     Indication: DIFFUSE LARGE B-CELL LYMPHOMA
     Route: 042
     Dates: start: 20080625, end: 20081009
  44. VINCRISTINE [Suspect]
     Active Substance: VINCRISTINE
     Dosage: LAST DOSE PRIOR TO SAE: 26 AUGUST 2008.
     Route: 042
  45. LOVENOX [Concomitant]
     Active Substance: ENOXAPARIN SODIUM
     Route: 065
     Dates: start: 20090215, end: 20090221
  46. PANTOLOC [Concomitant]
     Active Substance: PANTOPRAZOLE SODIUM
     Route: 065
  47. PANTOLOC [Concomitant]
     Active Substance: PANTOPRAZOLE SODIUM
     Route: 065
  48. PANTOLOC [Concomitant]
     Active Substance: PANTOPRAZOLE SODIUM
     Route: 065
     Dates: start: 20080703, end: 20090912
  49. HALCION [Concomitant]
     Active Substance: TRIAZOLAM
     Route: 065
  50. BUSCOPAN [Concomitant]
     Active Substance: BUTYLSCOPOLAMINE BROMIDE
     Route: 065
     Dates: start: 20090630, end: 20090912
  51. PLACEBO [Suspect]
     Active Substance: UNSPECIFIED INGREDIENT
     Dosage: LAST DOSE PRIOR TO SAE: 09 OCTOBER 2008.
     Route: 042
  52. LOVENOX [Concomitant]
     Active Substance: ENOXAPARIN SODIUM
     Route: 065
  53. HEXORAL (AUSTRIA) [Concomitant]
     Route: 065
  54. MYCOSTATIN [Concomitant]
     Active Substance: NYSTATIN
     Dosage: TDD REPORTED AS 4X.
     Route: 065
     Dates: start: 200907, end: 20090912
  55. ALLOPURINOL. [Concomitant]
     Active Substance: ALLOPURINOL
     Dosage: DAILY DOSE=300 UNIT
     Route: 065
  56. ALLOPURINOL. [Concomitant]
     Active Substance: ALLOPURINOL
     Route: 065
  57. DOMPERIDONE [Concomitant]
     Active Substance: DOMPERIDONE
     Dosage: DRUG NAME: MOTILIUM SUSP
     Route: 065
     Dates: start: 20080922, end: 20081005
  58. AVELOX (AUSTRIA) [Concomitant]
     Route: 065
     Dates: start: 20081207, end: 20081215
  59. AEROMUC [Concomitant]
     Route: 065
  60. PARACODEINE [Concomitant]
     Dosage: TDD REPORTED AS 20GTT
     Route: 065
     Dates: start: 20090708, end: 20090912
  61. SANDOSTATIN [Concomitant]
     Active Substance: OCTREOTIDE ACETATE
     Route: 065
     Dates: start: 20090722, end: 20090726
  62. SANDOSTATIN [Concomitant]
     Active Substance: OCTREOTIDE ACETATE
     Route: 065
     Dates: start: 20090801, end: 20090804
  63. SANDOSTATIN [Concomitant]
     Active Substance: OCTREOTIDE ACETATE
     Route: 065
     Dates: start: 20090815, end: 20090820
  64. SANDOSTATIN [Concomitant]
     Active Substance: OCTREOTIDE ACETATE
     Route: 065
     Dates: start: 20090821, end: 20090912
  65. LOVENOX [Concomitant]
     Active Substance: ENOXAPARIN SODIUM
     Route: 065
     Dates: start: 20081218, end: 20090118
  66. PANTOLOC [Concomitant]
     Active Substance: PANTOPRAZOLE SODIUM
     Route: 065
     Dates: start: 20080624, end: 20081116
  67. PANTOLOC [Concomitant]
     Active Substance: PANTOPRAZOLE SODIUM
     Route: 065
  68. ALLOPURINOL. [Concomitant]
     Active Substance: ALLOPURINOL
     Dosage: TOTAL DAILY DOSE: 320
     Route: 065
     Dates: start: 20090202, end: 20090217
  69. NEUPOGEN [Concomitant]
     Active Substance: FILGRASTIM
     Route: 065
     Dates: start: 20081207, end: 20081215
  70. AUGMENTIN [Concomitant]
     Active Substance: AMOXICILLIN\CLAVULANATE POTASSIUM
     Route: 065
  71. AMPHO MORONAL [Concomitant]
     Route: 065
     Dates: start: 20090803, end: 20090912
  72. PASPERTIN (AUSTRIA) [Concomitant]
     Dosage: TDD REPORTED 20GTT
     Route: 065
     Dates: start: 20090703, end: 20090912
  73. DALACIN [Concomitant]
     Active Substance: CLINDAMYCIN\CLINDAMYCIN PHOSPHATE
     Dosage: TDD: 1800.
     Route: 065
     Dates: start: 20090217, end: 20090310
  74. HETASTARCH. [Concomitant]
     Active Substance: HETASTARCH
     Dosage: TDD REPORTED AS 500ML
     Route: 065
     Dates: start: 20090727, end: 20090727
  75. PASSEDAN [Concomitant]
     Dosage: TD REPORTED AS 20GTT
     Route: 065
     Dates: start: 20090801, end: 20090912
  76. PLACEBO [Suspect]
     Active Substance: UNSPECIFIED INGREDIENT
     Indication: DIFFUSE LARGE B-CELL LYMPHOMA
     Dosage: DOSE BLINDED; THERAPY INTERRUPTED
     Route: 042
     Dates: start: 20080625, end: 20080826
  77. RITUXIMAB [Suspect]
     Active Substance: RITUXIMAB
     Route: 042
     Dates: start: 20081009, end: 20081023
  78. PREDNISONE. [Suspect]
     Active Substance: PREDNISONE
     Dosage: LAST DOSE PRIOR TO SAE: 26 AUGUST 2008.
     Route: 048
  79. VINCRISTINE [Suspect]
     Active Substance: VINCRISTINE
     Indication: DIFFUSE LARGE B-CELL LYMPHOMA
     Route: 042
     Dates: start: 20080625, end: 20081009
  80. LOVENOX [Concomitant]
     Active Substance: ENOXAPARIN SODIUM
     Route: 065
  81. LOVENOX [Concomitant]
     Active Substance: ENOXAPARIN SODIUM
     Route: 065
     Dates: start: 20090426, end: 20090506
  82. HEXORAL (AUSTRIA) [Concomitant]
     Dosage: DOSE: 4X
     Route: 065
  83. HEXORAL (AUSTRIA) [Concomitant]
     Dosage: TDD REPORTED AS 4X
     Route: 065
     Dates: start: 200807, end: 20090912
  84. LASIX [Concomitant]
     Active Substance: FUROSEMIDE
     Route: 065
     Dates: start: 20090905, end: 20090912
  85. POTASSIUM CHLORIDE. [Concomitant]
     Active Substance: POTASSIUM CHLORIDE
     Route: 065
  86. STRUCTOKABIVEN [Concomitant]
     Active Substance: AMINO ACIDS\DEXTROSE\ELECTROLYTES NOS
     Route: 065
     Dates: start: 20090705, end: 20090912
  87. DOXORUBICIN [Suspect]
     Active Substance: DOXORUBICIN
     Dosage: LAST DOSE PRIOR TO SAE: 26 AUGUST 2008.
     Route: 042

REACTIONS (12)
  - Leukopenia [Recovered/Resolved]
  - Rectal ulcer [Unknown]
  - Leukopenia [Recovered/Resolved]
  - Pyrexia [Recovered/Resolved]
  - Leukopenia [Unknown]
  - Febrile neutropenia [Recovered/Resolved]
  - Neutropenia [Recovered/Resolved]
  - Pancytopenia [Recovered/Resolved]
  - Febrile neutropenia [Not Recovered/Not Resolved]
  - Febrile neutropenia [Recovered/Resolved]
  - Blood sodium decreased [Recovered/Resolved]
  - Respiratory failure [Fatal]

NARRATIVE: CASE EVENT DATE: 20080716
